FAERS Safety Report 20059137 (Version 2)
Quarter: 2022Q1

REPORT INFORMATION
  Report Type: Spontaneous
  Country: US (occurrence: None)
  Receive Date: 20211111
  Receipt Date: 20220209
  Transmission Date: 20220423
  Serious: No
  Sender: FDA-Public Use
  Company Number: US-ROCHE-2860776

PATIENT
  Sex: Male

DRUGS (1)
  1. GAVRETO [Suspect]
     Active Substance: PRALSETINIB
     Indication: Thyroid cancer
     Dosage: TAKE 3 CAPSULES (300 MG TOTAL) BY MOUTH DAILY
     Route: 048
     Dates: start: 20210424

REACTIONS (2)
  - Diarrhoea [Unknown]
  - Hepatic enzyme increased [Unknown]
